FAERS Safety Report 6472128-6 (Version None)
Quarter: 2009Q4

REPORT INFORMATION
  Report Type: 
  Country: None (occurrence: None)
  Receive Date: 20091203
  Receipt Date: 20080429
  Transmission Date: 20100525
  Serious: Yes (Hospitalization)
  Sender: FDA-Public Use
  Company Number: US-ELI_LILLY_AND_COMPANY-US200804001754

PATIENT
  Sex: Male

DRUGS (10)
  1. HUMALOG [Suspect]
  2. HUMULIN N [Suspect]
  3. HUMULIN N [Suspect]
  4. HUMULIN R [Suspect]
  5. NOVOLIN [Concomitant]
  6. PREDNISONE [Concomitant]
  7. ALBUTEROL [Concomitant]
  8. CARDIZEM [Concomitant]
  9. PLAVIX [Concomitant]
  10. VICODIN [Concomitant]

REACTIONS (7)
  - CHRONIC OBSTRUCTIVE PULMONARY DISEASE [None]
  - HYPOAESTHESIA ORAL [None]
  - LIP SWELLING [None]
  - MYOCARDIAL INFARCTION [None]
  - OXYGEN SATURATION DECREASED [None]
  - PRURITUS GENERALISED [None]
  - STENT PLACEMENT [None]
